FAERS Safety Report 7404569-4 (Version None)
Quarter: 2011Q2

REPORT INFORMATION
  Report Type: 
  Country: None (occurrence: None)
  Receive Date: 20110411
  Receipt Date: 20110401
  Transmission Date: 20111010
  Serious: Yes (Hospitalization)
  Sender: FDA-Public Use
  Company Number: US-BIOGENIDEC-2010BI015761

PATIENT
  Age: 26 Year
  Sex: Male

DRUGS (9)
  1. EFFEXOR XR [Concomitant]
     Indication: DEPRESSION
     Route: 048
     Dates: start: 20100101
  2. TYSABRI [Suspect]
     Indication: MULTIPLE SCLEROSIS
     Route: 042
     Dates: start: 20080225, end: 20100301
  3. VITAMIN D [Concomitant]
     Indication: VITAMIN D DEFICIENCY
     Dates: start: 20081101
  4. DETROL [Concomitant]
     Indication: BLADDER DYSFUNCTION
     Route: 048
     Dates: start: 20081101
  5. SENOKOT [Concomitant]
     Indication: CONSTIPATION
     Dates: start: 20070101
  6. CYMBALTA [Concomitant]
     Indication: DEPRESSION
     Dates: start: 20081101, end: 20100225
  7. BACLOFEN [Concomitant]
     Indication: PAIN
     Route: 048
     Dates: start: 20050101
  8. FISH OIL [Concomitant]
     Indication: SUPPLEMENTATION THERAPY
     Dates: start: 20081101
  9. CYMBALTA [Concomitant]
     Indication: PAIN
     Dates: start: 20081101, end: 20100225

REACTIONS (1)
  - CONVULSION [None]
